FAERS Safety Report 24971783 (Version 2)
Quarter: 2025Q3

REPORT INFORMATION
  Report Type: Spontaneous
  Country: JP (occurrence: None)
  Receive Date: 20250214
  Receipt Date: 20250810
  Transmission Date: 20251021
  Serious: Yes (Hospitalization, Other)
  Sender: ALEXION PHARMACEUTICALS
  Company Number: JP-ASTRAZENECA-201309258_020520_P_1

PATIENT
  Age: 80 Year
  Sex: Female
  Weight: 57 kg

DRUGS (8)
  1. NEXIUM [Suspect]
     Active Substance: ESOMEPRAZOLE MAGNESIUM
     Indication: Gastrooesophageal reflux disease
     Dosage: 10 MILLIGRAM, QD
     Dates: start: 20130328, end: 20130414
  2. URSO [Concomitant]
     Active Substance: URSODIOL
     Indication: Cholelithiasis
     Dosage: 100 MILLIGRAM, TID
     Dates: start: 19980406
  3. ALOSENN [Concomitant]
     Indication: Constipation
     Dosage: .5 GRAM, QD
     Dates: start: 1997
  4. AVAPRO [Concomitant]
     Active Substance: IRBESARTAN
     Indication: Hypertension
     Dosage: 100 MILLIGRAM, BID
     Dates: start: 20090716
  5. BENIDIPINE HYDROCHLORIDE [Concomitant]
     Active Substance: BENIDIPINE HYDROCHLORIDE
     Indication: Hypertension
     Dosage: 4 MILLIGRAM, BID
     Dates: start: 20110106
  6. PRAVASTATIN SODIUM [Concomitant]
     Active Substance: PRAVASTATIN SODIUM
     Indication: Hyperlipidaemia
     Dosage: 10 MILLIGRAM, QD
     Dates: start: 1997
  7. SODIUM PICOSULFATE [Concomitant]
     Active Substance: SODIUM PICOSULFATE
     Indication: Constipation
  8. FILGRASTIM [Concomitant]
     Active Substance: FILGRASTIM

REACTIONS (5)
  - Stevens-Johnson syndrome [Recovered/Resolved]
  - Anaemia [Recovering/Resolving]
  - Deafness [Not Recovered/Not Resolved]
  - Blood pressure decreased [Recovered/Resolved]
  - Melaena [Recovered/Resolved]

NARRATIVE: CASE EVENT DATE: 20130413
